FAERS Safety Report 25170167 (Version 3)
Quarter: 2025Q2

REPORT INFORMATION
  Report Type: Spontaneous
  Country: MA (occurrence: MA)
  Receive Date: 20250407
  Receipt Date: 20250528
  Transmission Date: 20250717
  Serious: Yes (Death, Life-Threatening, Other)
  Sender: ORGANON
  Company Number: MA-MLMSERVICE-20250326-PI457244-00064-1

PATIENT
  Age: 32 Year
  Sex: Female

DRUGS (1)
  1. BETAMETHASONE DIPROPIONATE [Suspect]
     Active Substance: BETAMETHASONE DIPROPIONATE
     Indication: Dermatosis
     Route: 061

REACTIONS (3)
  - Cushing^s syndrome [Fatal]
  - Adrenal insufficiency [Fatal]
  - Intentional product misuse [Fatal]
